FAERS Safety Report 5103359-5 (Version None)
Quarter: 2006Q3

REPORT INFORMATION
  Report Type: 
  Country: None (occurrence: None)
  Receive Date: 20060913
  Receipt Date: 20060809
  Transmission Date: 20061208
  Serious: Yes (Hospitalization, Other)
  Sender: FDA-Public Use
  Company Number: US-AMGEN-STX189558

PATIENT
  Sex: Female

DRUGS (4)
  1. ENBREL [Suspect]
     Indication: RHEUMATOID ARTHRITIS
     Route: 058
     Dates: start: 20010601, end: 20060101
  2. AZULFIDINE [Concomitant]
     Route: 048
     Dates: start: 20050101
  3. PREDNISONE TAB [Concomitant]
  4. TYLENOL [Concomitant]

REACTIONS (4)
  - ANKLE OPERATION [None]
  - DIABETES MELLITUS [None]
  - OPTIC NEURITIS RETROBULBAR [None]
  - VITREOUS FLOATERS [None]
